FAERS Safety Report 7136139-X (Version None)
Quarter: 2010Q4

REPORT INFORMATION
  Report Type: 
  Country: None (occurrence: None)
  Receive Date: 20101205
  Receipt Date: 20101124
  Transmission Date: 20110411
  Serious: Yes (Hospitalization)
  Sender: FDA-Public Use
  Company Number: US-JNJFOC-20090406226

PATIENT
  Sex: Female
  Weight: 55.4 kg

DRUGS (5)
  1. INFLIXIMAB [Suspect]
     Indication: INFLAMMATORY BOWEL DISEASE
     Route: 042
  2. MESALAMINE [Concomitant]
  3. ASACOL [Concomitant]
  4. ACIDOPHILUS [Concomitant]
  5. ORAL CONTRACEPTION [Concomitant]

REACTIONS (3)
  - GASTRITIS [None]
  - HAEMATEMESIS [None]
  - OESOPHAGITIS [None]
